FAERS Safety Report 7646001-1 (Version None)
Quarter: 2011Q3

REPORT INFORMATION
  Report Type: 
  Country: None (occurrence: None)
  Receive Date: 20110731
  Receipt Date: 20110718
  Transmission Date: 20111222
  Serious: Yes (Hospitalization)
  Sender: FDA-Public Use
  Company Number: PHHY2011IN65191

PATIENT
  Age: 48 Year
  Sex: Male

DRUGS (1)
  1. CARBAMAZEPINE [Suspect]
     Indication: AFFECTIVE DISORDER
     Dosage: 400 MG, BID

REACTIONS (9)
  - RESPIRATORY DEPRESSION [None]
  - PUPILLARY REFLEX IMPAIRED [None]
  - OVERDOSE [None]
  - HYPOTONIA [None]
  - HYPOREFLEXIA [None]
  - TOXICITY TO VARIOUS AGENTS [None]
  - LOSS OF CONSCIOUSNESS [None]
  - UNRESPONSIVE TO STIMULI [None]
  - DRUG LEVEL INCREASED [None]
